FAERS Safety Report 17224409 (Version 1)
Quarter: 2020Q1

REPORT INFORMATION
  Report Type: Spontaneous
  Country: US (occurrence: US)
  Receive Date: 20200102
  Receipt Date: 20200102
  Transmission Date: 20200409
  Serious: Yes (Hospitalization)
  Sender: FDA-Public Use
  Company Number: NVSC2019US082021

PATIENT
  Sex: Female

DRUGS (1)
  1. ISOPTO CARPINE [Suspect]
     Active Substance: PILOCARPINE HYDROCHLORIDE
     Indication: GLAUCOMA
     Dosage: 4 GTT, QD
     Route: 065

REACTIONS (2)
  - Eye injury [Unknown]
  - Drug hypersensitivity [Unknown]
